FAERS Safety Report 7553408-X (Version None)
Quarter: 2011Q2

REPORT INFORMATION
  Report Type: 
  Country: None (occurrence: None)
  Receive Date: 20110617
  Receipt Date: 20110608
  Transmission Date: 20111010
  Serious: Yes (Other)
  Sender: FDA-Public Use
  Company Number: US-SHIRE-ALL1-2011-01822

PATIENT
  Sex: Female
  Weight: 74.83 kg

DRUGS (3)
  1. MELATONIN [Concomitant]
     Indication: INSOMNIA
     Dosage: UNK, 1X/DAY:QD (AT NIGHT)
     Route: 048
     Dates: start: 20090101
  2. MAS (MIXED AMPHETAMINE SALTS) [Suspect]
     Indication: ATTENTION DEFICIT/HYPERACTIVITY DISORDER
     Dosage: UNK, 1X/DAY:QD
     Route: 048
     Dates: start: 20100101, end: 20110529
  3. LEXAPRO [Concomitant]
     Indication: ANXIETY
     Dosage: 20 MG, 1X/DAY:QD
     Route: 048
     Dates: start: 20100101

REACTIONS (2)
  - LYMPHADENOPATHY [None]
  - HEART RATE INCREASED [None]
